FAERS Safety Report 7416253-1 (Version None)
Quarter: 2011Q2

REPORT INFORMATION
  Report Type: 
  Country: None (occurrence: None)
  Receive Date: 20110414
  Receipt Date: 20110331
  Transmission Date: 20111010
  Serious: Yes (Other)
  Sender: FDA-Public Use
  Company Number: FR-CELGENEUS-056-21880-10123136

PATIENT
  Age: 74 Year
  Sex: Male

DRUGS (3)
  1. REVLIMID [Suspect]
     Dosage: 10 MILLIGRAM
     Route: 048
  2. REVLIMID [Suspect]
     Dosage: 5 MILLIGRAM
     Route: 048
  3. DEFERASIROX [Concomitant]
     Indication: CHELATION THERAPY
     Route: 065

REACTIONS (12)
  - DECREASED APPETITE [None]
  - NEUTROPENIA [None]
  - THROMBOCYTOPENIA [None]
  - MUSCULAR WEAKNESS [None]
  - ACUTE MYELOID LEUKAEMIA [None]
  - SKIN PLAQUE [None]
  - ARTHRALGIA [None]
  - CLONAL EVOLUTION [None]
  - MYELODYSPLASTIC SYNDROME TRANSFORMATION [None]
  - ANAEMIA [None]
  - APATHY [None]
  - WEIGHT DECREASED [None]
